FAERS Safety Report 21302249 (Version 1)
Quarter: 2022Q3

REPORT INFORMATION
  Report Type: Spontaneous
  Country: CN (occurrence: CN)
  Receive Date: 20220907
  Receipt Date: 20220907
  Transmission Date: 20221027
  Serious: Yes (Hospitalization, Other)
  Sender: FDA-Public Use
  Company Number: CN-HALEON-CNCH2022APC031676

PATIENT

DRUGS (2)
  1. IBUPROFEN [Suspect]
     Active Substance: IBUPROFEN
     Indication: Pyrexia
     Dosage: 1 DF, BID
     Route: 048
     Dates: start: 20220726, end: 20220806
  2. ACETAMINOPHEN\AMANTADINE HYDROCHLORIDE [Suspect]
     Active Substance: ACETAMINOPHEN\AMANTADINE HYDROCHLORIDE
     Indication: Pyrexia
     Dosage: 1 DF, BID
     Route: 048
     Dates: start: 20220726, end: 20220806

REACTIONS (5)
  - Liver injury [Not Recovered/Not Resolved]
  - Yellow skin [Not Recovered/Not Resolved]
  - Scleral discolouration [Not Recovered/Not Resolved]
  - Chromaturia [Not Recovered/Not Resolved]
  - Jaundice [Not Recovered/Not Resolved]

NARRATIVE: CASE EVENT DATE: 20220101
